FAERS Safety Report 23563509 (Version 1)
Quarter: 2024Q1

REPORT INFORMATION
  Report Type: Spontaneous
  Country: US (occurrence: US)
  Receive Date: 20240226
  Receipt Date: 20240226
  Transmission Date: 20240410
  Serious: No
  Sender: FDA-Public Use
  Company Number: US-Accord-308719

PATIENT
  Sex: Female
  Weight: 106.14 kg

DRUGS (6)
  1. BUSPIRONE HYDROCHLORIDE [Suspect]
     Active Substance: BUSPIRONE HYDROCHLORIDE
     Indication: Bipolar disorder
     Dosage: 30MG EVERY MORNING AND 30MG EVERY DAY WITH LUNCH
     Route: 048
     Dates: start: 20230209
  2. AMITRIPTYLINE [Concomitant]
     Active Substance: AMITRIPTYLINE
     Dosage: INCREASED FROM 100MG TO 200MG
     Route: 048
  3. AMBIEN [Concomitant]
     Active Substance: ZOLPIDEM TARTRATE
     Indication: Sleep disorder
     Dosage: EVERY NIGHT AT BEDTIME
     Route: 048
  4. MUCINEX [Concomitant]
     Active Substance: GUAIFENESIN
     Route: 048
  5. ALBUTEROL [Concomitant]
     Active Substance: ALBUTEROL
     Dosage: IN BREATHING MACHINE
  6. EPINEPHRINE [Concomitant]
     Active Substance: EPINEPHRINE
     Dosage: PILLS

REACTIONS (3)
  - Recalled product [Unknown]
  - Drug ineffective for unapproved indication [Unknown]
  - Off label use [Unknown]
